FAERS Safety Report 7058591-0 (Version None)
Quarter: 2010Q4

REPORT INFORMATION
  Report Type: 
  Country: None (occurrence: None)
  Receive Date: 20101022
  Receipt Date: 20101013
  Transmission Date: 20110411
  Serious: Yes (Hospitalization)
  Sender: FDA-Public Use
  Company Number: A0887883A

PATIENT
  Sex: Male

DRUGS (5)
  1. REQUIP [Suspect]
     Indication: RESTLESS LEGS SYNDROME
     Route: 048
  2. ROPINIROLE [Suspect]
     Indication: RESTLESS LEGS SYNDROME
  3. SINEMET [Suspect]
     Indication: RESTLESS LEGS SYNDROME
  4. MORPHINE [Suspect]
  5. ANTIHYPERTENSIVE [Suspect]
     Indication: HYPERTENSION
     Dates: start: 20100101

REACTIONS (8)
  - ADVERSE DRUG REACTION [None]
  - CHOLECYSTECTOMY [None]
  - DIARRHOEA [None]
  - DRUG INEFFECTIVE [None]
  - PRODUCT QUALITY ISSUE [None]
  - RESTLESS LEGS SYNDROME [None]
  - THERAPEUTIC RESPONSE DECREASED [None]
  - URTICARIA [None]
